FAERS Safety Report 10490560 (Version 2)
Quarter: 2014Q4

REPORT INFORMATION
  Report Type: Report from Study
  Country: US (occurrence: US)
  Receive Date: 20141002
  Receipt Date: 20141011
  Transmission Date: 20150528
  Serious: Yes (Death)
  Sender: FDA-Public Use
  Company Number: PHEH2014US019563

PATIENT
  Sex: Female
  Weight: 40.82 kg

DRUGS (2)
  1. GLEEVEC [Suspect]
     Active Substance: IMATINIB MESYLATE
     Indication: OFF LABEL USE
  2. GLEEVEC [Suspect]
     Active Substance: IMATINIB MESYLATE
     Indication: BONE CANCER
     Dosage: 400 MG, QD
     Route: 048

REACTIONS (3)
  - Malignant neoplasm progression [Fatal]
  - Brain compression [Fatal]
  - Bone cancer [Fatal]
